FAERS Safety Report 4474367-2 (Version None)
Quarter: 2004Q4

REPORT INFORMATION
  Report Type: 
  Country: None (occurrence: None)
  Receive Date: 20041014
  Receipt Date: 20041003
  Transmission Date: 20050328
  Serious: Yes (Hospitalization)
  Sender: FDA-Public Use
  Company Number: US-MERCK-0410USA00409

PATIENT
  Age: 57 Year
  Sex: Female

DRUGS (5)
  1. ASPIRIN [Concomitant]
     Route: 065
     Dates: start: 20030801
  2. LEVOXYL [Concomitant]
     Route: 065
     Dates: start: 19790101
  3. VIOXX [Suspect]
     Indication: ARTHRITIS
     Route: 048
     Dates: start: 19990101, end: 20040930
  4. VIOXX [Suspect]
     Route: 065
  5. ZOCOR [Concomitant]
     Route: 048
     Dates: start: 20040601

REACTIONS (5)
  - ARTERIAL OCCLUSIVE DISEASE [None]
  - DIZZINESS [None]
  - HEADACHE [None]
  - HYPERTENSION [None]
  - OEDEMA PERIPHERAL [None]
